FAERS Safety Report 4804042-3 (Version None)
Quarter: 2005Q4

REPORT INFORMATION
  Report Type: 
  Country: None (occurrence: None)
  Receive Date: 20051018
  Receipt Date: 20051018
  Transmission Date: 20060501
  Serious: No
  Sender: FDA-Public Use
  Company Number: None

PATIENT
  Age: 69 Year
  Sex: Female

DRUGS (1)
  1. INFLIXIMAB;REMICADE;CENTOCOR;INFLAMMATORY BOWEL DISEASE [Suspect]
     Dosage: ;;0;0
     Dates: start: 20050805, end: 20050806

REACTIONS (5)
  - CARDIAC FAILURE CONGESTIVE [None]
  - CONDITION AGGRAVATED [None]
  - HYPOTENSION [None]
  - POLYURIA [None]
  - RENAL FAILURE ACUTE [None]
